FAERS Safety Report 14800926 (Version 1)
Quarter: 2018Q2

REPORT INFORMATION
  Report Type: Spontaneous
  Country: US (occurrence: US)
  Receive Date: 20180424
  Receipt Date: 20180424
  Transmission Date: 20180711
  Serious: Yes (Hospitalization)
  Sender: FDA-Public Use
  Company Number: US-BAYER-2018-075074

PATIENT
  Sex: Male

DRUGS (1)
  1. KOGENATE FS [Suspect]
     Active Substance: ANTIHEMOPHILIC FACTOR, HUMAN RECOMBINANT
     Indication: FACTOR VIII DEFICIENCY
     Dosage: INFUSES 3500 UNITS (+/-10%) EVERY 8 HOURS FOR 3 DAYS AS NEEDED FOR BLEED
     Route: 042

REACTIONS (1)
  - Haemorrhage [Not Recovered/Not Resolved]
